FAERS Safety Report 5593606-8 (Version None)
Quarter: 2008Q1

REPORT INFORMATION
  Report Type: 
  Country: None (occurrence: None)
  Receive Date: 20080116
  Receipt Date: 20080114
  Transmission Date: 20080703
  Serious: Yes (Other)
  Sender: FDA-Public Use
  Company Number: US-ALLERGAN-0800430US

PATIENT
  Sex: Female

DRUGS (9)
  1. RESTASIS [Suspect]
     Indication: DRY EYE
     Dosage: UNK, BID
     Route: 047
     Dates: start: 20070401, end: 20080113
  2. SYSTANE [Concomitant]
     Indication: DRY EYE
  3. OPTIVE [Concomitant]
     Indication: DRY EYE
  4. REFRESH LUBRICANT OPHTHALMIC SOLUTION [Concomitant]
     Indication: DRY EYE
  5. GENTEAL GEL [Concomitant]
     Indication: DRY EYE
  6. THERATEARS GEL CAPS [Concomitant]
     Indication: DRY EYE
  7. EVOXAC [Concomitant]
     Indication: DRY MOUTH
  8. PREVACID [Concomitant]
     Dosage: 30 MG, QD
  9. ATENOLOL [Concomitant]
     Dosage: 100 MG, QD

REACTIONS (6)
  - DRUG INEFFECTIVE [None]
  - EYE PAIN [None]
  - EYE PRURITUS [None]
  - LACRIMAL DISORDER [None]
  - SJOGREN'S SYNDROME [None]
  - VISION BLURRED [None]
